FAERS Safety Report 23294313 (Version 1)
Quarter: 2023Q4

REPORT INFORMATION
  Report Type: Spontaneous
  Country: US (occurrence: None)
  Receive Date: 20231213
  Receipt Date: 20231213
  Transmission Date: 20240110
  Serious: No
  Sender: FDA-Public Use
  Company Number: None

PATIENT
  Sex: Male

DRUGS (3)
  1. VUMERITY [Suspect]
     Active Substance: DIROXIMEL FUMARATE
     Indication: Multiple sclerosis
     Dosage: 462MG 2 TIMES A DAY BY MOUTH?
     Route: 048
     Dates: start: 202303
  2. AMPYRA [Concomitant]
     Active Substance: DALFAMPRIDINE
  3. DALFAMPRIDINE ER [Concomitant]

REACTIONS (1)
  - Drug ineffective [None]
